FAERS Safety Report 5518681-8 (Version None)
Quarter: 2007Q4

REPORT INFORMATION
  Report Type: 
  Country: None (occurrence: None)
  Receive Date: 20071113
  Receipt Date: 20071031
  Transmission Date: 20080405
  Serious: Yes (Hospitalization)
  Sender: FDA-Public Use
  Company Number: PAR_01790_2007

PATIENT
  Sex: Female

DRUGS (1)
  1. IBUPROFEN [Suspect]
     Indication: ARTHRITIS
     Dosage: (DF ORAL)
     Route: 048
     Dates: end: 20060517

REACTIONS (1)
  - DYSPEPSIA [None]
